FAERS Safety Report 8638689 (Version 2)
Quarter: 2012Q4

REPORT INFORMATION
  Report Type: 
  Country: US (occurrence: US)
  Receive Date: 20120627
  Receipt Date: 20120830
  Transmission Date: 20130627
  Serious: Yes (Other)
  Sender: FDA-Public Use
  Company Number: US-BAYER-2012-063284

PATIENT
  Age: 40 Year
  Sex: Female

DRUGS (10)
  1. AVELOX [Suspect]
     Indication: SINUSITIS
     Dosage: 400 mg, QD
     Route: 048
     Dates: start: 20120618, end: 20120621
  2. SERTRALINE [Concomitant]
  3. ADDERALL [Concomitant]
     Dosage: 20 mg, UNK
  4. XANAX [Concomitant]
     Dosage: 1 mg, TID
  5. ZOLOFT [Concomitant]
     Dosage: 100 mg, UNK
  6. DOXYCYCLINE [Concomitant]
  7. AMOXIL [Concomitant]
  8. LORTAB [Concomitant]
     Dosage: 1 TAB
  9. AUGMENTIN [Concomitant]
     Dosage: 1 TAB
  10. FIORINAL [ACETYLSALICYLIC ACID,BUTALBITAL,CAFFEINE] [Concomitant]
     Dosage: 1 cap

REACTIONS (13)
  - Vomiting [Recovered/Resolved]
  - Diarrhoea [Recovered/Resolved]
  - Cough [Recovering/Resolving]
  - Crying [Recovering/Resolving]
  - Muscle spasms [Recovering/Resolving]
  - Muscle tightness [Recovering/Resolving]
  - Polymenorrhoea [Recovering/Resolving]
  - Hypokalaemia [Recovering/Resolving]
  - Mastication disorder [Recovering/Resolving]
  - Nausea [None]
  - Pain in extremity [None]
  - Arthralgia [None]
  - Myalgia [None]
